FAERS Safety Report 4516188-8 (Version None)
Quarter: 2004Q4

REPORT INFORMATION
  Report Type: 
  Country: None (occurrence: None)
  Receive Date: 20041129
  Receipt Date: 20041115
  Transmission Date: 20050328
  Serious: Yes (Death)
  Sender: FDA-Public Use
  Company Number: 2004096123

PATIENT
  Age: 67 Year
  Sex: Male

DRUGS (4)
  1. IDARUBICIN HYDROCHLORIDE POWDER, STERILE (IDARUBICIN HYDROCHLORIDE) [Suspect]
     Indication: MALIGNANT SOFT TISSUE NEOPLASM
     Dosage: 3 MG (3 MG, CYCLIC INTERVAL: EVERY 21 DAYS), INTRAVENOUS
     Route: 042
     Dates: start: 20030807
  2. VINCRISTINE SULFATE [Concomitant]
  3. CYCLOPHOSPHAMIDE [Concomitant]
  4. PREDNISONE [Concomitant]

REACTIONS (7)
  - FATIGUE [None]
  - MALIGNANT NEOPLASM PROGRESSION [None]
  - MALIGNANT SOFT TISSUE NEOPLASM [None]
  - NAUSEA [None]
  - NIGHT SWEATS [None]
  - SARCOMA [None]
  - WEIGHT DECREASED [None]
